FAERS Safety Report 4754057-9 (Version None)
Quarter: 2005Q3

REPORT INFORMATION
  Report Type: 
  Country: None (occurrence: None)
  Receive Date: 20050826
  Receipt Date: 20050427
  Transmission Date: 20060218
  Serious: Yes (Other)
  Sender: FDA-Public Use
  Company Number: US-MERCK-0505USA00260

PATIENT
  Age: 58 Year
  Sex: Female
  Weight: 136 kg

DRUGS (10)
  1. VIOXX [Suspect]
     Indication: ARTHRITIS
     Route: 048
     Dates: start: 19991201, end: 20040901
  2. LASIX [Concomitant]
     Indication: BLOOD PRESSURE
     Route: 065
     Dates: start: 19980101
  3. CARTIA (DILTIAZEM HYDROCHLORIDE) [Concomitant]
     Indication: ANGINA PECTORIS
     Route: 065
     Dates: start: 19980101
  4. DIGOXIN [Concomitant]
     Indication: CARDIAC DISORDER
     Route: 065
     Dates: start: 19980101
  5. K-DUR 10 [Concomitant]
     Indication: MINERAL SUPPLEMENTATION
     Route: 065
  6. ATIVAN [Concomitant]
     Indication: ANXIETY
     Route: 065
     Dates: start: 20000501
  7. HYDROCORTISONE [Concomitant]
     Route: 065
  8. TRIMETHOPRIM [Concomitant]
     Route: 065
  9. METRONIDAZOLE [Concomitant]
     Route: 065
  10. AUGMENTIN '125' [Concomitant]
     Route: 065

REACTIONS (9)
  - ANGINA PECTORIS [None]
  - BIOPSY BREAST [None]
  - BLOOD TRIGLYCERIDES INCREASED [None]
  - CARDIAC DISORDER [None]
  - DEPRESSION [None]
  - DIABETES MELLITUS [None]
  - GASTROOESOPHAGEAL REFLUX DISEASE [None]
  - HYPERTENSION [None]
  - TRANSIENT ISCHAEMIC ATTACK [None]
